FAERS Safety Report 11532273 (Version 1)
Quarter: 2015Q3

REPORT INFORMATION
  Report Type: Spontaneous
  Country: US (occurrence: US)
  Receive Date: 20150921
  Receipt Date: 20150921
  Transmission Date: 20151125
  Serious: No
  Sender: FDA-Public Use
  Company Number: US-PFIZER INC-2015303817

PATIENT
  Age: 54 Year
  Sex: Female
  Weight: 69 kg

DRUGS (3)
  1. LYRICA [Suspect]
     Active Substance: PREGABALIN
     Indication: FIBROMYALGIA
     Dosage: 150 MG, 2X/DAY
     Route: 048
  2. MORPHINE SULFATE, EXTENDED RELEASE [Concomitant]
     Indication: OSTEOARTHRITIS
     Dosage: 30 MG, 2X/DAY
     Route: 048
  3. MORPHINE SULFATE, EXTENDED RELEASE [Concomitant]
     Indication: RHEUMATOID ARTHRITIS

REACTIONS (1)
  - Pain [Not Recovered/Not Resolved]

NARRATIVE: CASE EVENT DATE: 201508
